FAERS Safety Report 13366866 (Version 1)
Quarter: 2017Q1

REPORT INFORMATION
  Report Type: Spontaneous
  Country: US (occurrence: US)
  Receive Date: 20170324
  Receipt Date: 20170324
  Transmission Date: 20170429
  Serious: No
  Sender: FDA-Public Use
  Company Number: US-BEH-2017079078

PATIENT
  Age: 90 Year
  Sex: Female
  Weight: 63.49 kg

DRUGS (30)
  1. HUMALOG [Concomitant]
     Active Substance: INSULIN LISPRO
     Route: 065
  2. LOSARTAN. [Concomitant]
     Active Substance: LOSARTAN
     Route: 065
  3. SUCRALFATE. [Concomitant]
     Active Substance: SUCRALFATE
     Route: 065
  4. OMEPRAZOLE. [Concomitant]
     Active Substance: OMEPRAZOLE
     Route: 065
  5. AMLODIPINE [Concomitant]
     Active Substance: AMLODIPINE BESYLATE
     Route: 065
  6. CHLORPHENIRAMINE                   /00072501/ [Concomitant]
     Active Substance: CHLORPHENIRAMINE
     Route: 065
  7. LUMIGAN [Concomitant]
     Active Substance: BIMATOPROST
     Route: 065
  8. ZETIA [Concomitant]
     Active Substance: EZETIMIBE
     Route: 065
  9. GABAPENTIN. [Concomitant]
     Active Substance: GABAPENTIN
     Route: 065
  10. VICODIN [Concomitant]
     Active Substance: ACETAMINOPHEN\HYDROCODONE BITARTRATE
     Route: 065
  11. HIZENTRA [Suspect]
     Active Substance: HUMAN IMMUNOGLOBULIN G
     Indication: IMMUNODEFICIENCY COMMON VARIABLE
     Dosage: 8 G, QW
     Route: 058
     Dates: start: 20101027
  12. LORAZEPAM. [Concomitant]
     Active Substance: LORAZEPAM
     Route: 065
  13. ZOLPIDEM [Concomitant]
     Active Substance: ZOLPIDEM\ZOLPIDEM TARTRATE
     Route: 065
  14. EPIPEN [Concomitant]
     Active Substance: EPINEPHRINE
     Route: 065
  15. CITRACAL + D                       /01438101/ [Concomitant]
     Route: 065
  16. DULCOLAX (BISACODYL) [Concomitant]
     Active Substance: BISACODYL
     Route: 065
  17. MIRALAX [Concomitant]
     Active Substance: POLYETHYLENE GLYCOL 3350
     Route: 065
  18. AFRIN [Concomitant]
     Active Substance: OXYMETAZOLINE
     Route: 065
  19. DIPHENHYDRAMINE. [Concomitant]
     Active Substance: DIPHENHYDRAMINE
     Route: 065
  20. HUMULIN N [Concomitant]
     Active Substance: INSULIN HUMAN
     Route: 065
  21. CLOTRIMAZOLE. [Concomitant]
     Active Substance: CLOTRIMAZOLE
     Route: 065
  22. BUDESONIDE. [Concomitant]
     Active Substance: BUDESONIDE
     Route: 065
  23. PROAIR HFA [Concomitant]
     Active Substance: ALBUTEROL SULFATE
     Route: 065
  24. ASPIRIN. [Concomitant]
     Active Substance: ASPIRIN
     Route: 065
  25. ALBUTEROL                          /00139501/ [Concomitant]
     Active Substance: ALBUTEROL
     Route: 065
  26. AQUAPHOR                           /00298701/ [Concomitant]
     Route: 065
  27. LIDOCAINE                          /00033402/ [Concomitant]
     Active Substance: LIDOCAINE
     Route: 065
  28. PAIN RELIEF NOS [Concomitant]
     Active Substance: CAMPHOR (SYNTHETIC)\LEVOMENTHOL\MENTHYL SALICYLATE OR CAMPHOR (SYNTHETIC)\MENTHOL\MENTHYL SALICYLATE OR MENTHOL\MENTHYL SALICYLATE
     Route: 065
  29. OXYCONTIN [Concomitant]
     Active Substance: OXYCODONE HYDROCHLORIDE
     Route: 065
  30. RANITIDINE. [Concomitant]
     Active Substance: RANITIDINE
     Route: 065

REACTIONS (4)
  - Dyskinesia [Unknown]
  - Fatigue [Unknown]
  - Myalgia [Unknown]
  - Muscle spasms [Unknown]

NARRATIVE: CASE EVENT DATE: 20170320
